FAERS Safety Report 5697727-0 (Version None)
Quarter: 2008Q2

REPORT INFORMATION
  Report Type: 
  Country: None (occurrence: None)
  Receive Date: 20080408
  Receipt Date: 20080331
  Transmission Date: 20081010
  Serious: Yes (Hospitalization)
  Sender: FDA-Public Use
  Company Number: B0514723A

PATIENT
  Age: 83 Year
  Sex: Female

DRUGS (5)
  1. CLAMOXYL [Suspect]
     Route: 048
     Dates: start: 20070921, end: 20070921
  2. CARDENSIEL [Concomitant]
     Indication: DRUG USE FOR UNKNOWN INDICATION
     Dosage: 1.25MG PER DAY
     Route: 048
  3. PREVISCAN [Concomitant]
     Indication: DRUG USE FOR UNKNOWN INDICATION
     Route: 048
  4. SIMVASTATIN [Concomitant]
     Indication: DRUG USE FOR UNKNOWN INDICATION
     Dosage: 20MG PER DAY
     Route: 048
  5. RAMIPRIL [Concomitant]
     Indication: DRUG USE FOR UNKNOWN INDICATION
     Dosage: 10MG PER DAY
     Route: 048

REACTIONS (7)
  - DYSPNOEA [None]
  - GENERALISED ERYTHEMA [None]
  - HEART SOUNDS ABNORMAL [None]
  - OEDEMA PERIPHERAL [None]
  - PRURITUS [None]
  - RASH PUSTULAR [None]
  - TOXIC SKIN ERUPTION [None]
